FAERS Safety Report 4487856-1 (Version None)
Quarter: 2004Q4

REPORT INFORMATION
  Report Type: 
  Country: None (occurrence: None)
  Receive Date: 20041027
  Receipt Date: 20041027
  Transmission Date: 20050328
  Serious: Yes (Other)
  Sender: FDA-Public Use
  Company Number: None

PATIENT
  Age: 17 Year
  Sex: Female
  Weight: 88.4514 kg

DRUGS (1)
  1. CLARITIN-D [Suspect]
     Indication: SEASONAL ALLERGY
     Dosage: QD, PO
     Route: 048
     Dates: start: 20000101

REACTIONS (2)
  - PYREXIA [None]
  - URTICARIA [None]
